FAERS Safety Report 4294243-8 (Version None)
Quarter: 2004Q1

REPORT INFORMATION
  Report Type: 
  Country: None (occurrence: None)
  Receive Date: 20040212
  Receipt Date: 20040212
  Transmission Date: 20041129
  Serious: Yes (Life-Threatening)
  Sender: FDA-Public Use
  Company Number: None

PATIENT
  Age: 40 Year
  Sex: Male
  Weight: 99.7913 kg

DRUGS (1)
  1. PRAVACHOL [Suspect]
     Indication: BLOOD CHOLESTEROL
     Dosage: ONCE A DAY

REACTIONS (4)
  - DIFFICULTY IN WALKING [None]
  - HEPATIC ENZYME INCREASED [None]
  - MUSCLE ENZYME INCREASED [None]
  - PAIN IN EXTREMITY [None]
